FAERS Safety Report 23184858 (Version 2)
Quarter: 2023Q4

REPORT INFORMATION
  Report Type: Spontaneous
  Country: US (occurrence: US)
  Receive Date: 20231115
  Receipt Date: 20231121
  Transmission Date: 20240110
  Serious: No
  Sender: FDA-Public Use
  Company Number: US-AMGEN-USASP2023203502

PATIENT
  Age: 58 Year
  Sex: Female

DRUGS (15)
  1. OTEZLA [Suspect]
     Active Substance: APREMILAST
     Indication: Psoriatic arthropathy
     Dosage: 30 MILLIGRAM, BID
     Route: 048
  2. SYMBICORT [Concomitant]
     Active Substance: BUDESONIDE\FORMOTEROL FUMARATE DIHYDRATE
  3. PREDNISOLONE [Concomitant]
     Active Substance: PREDNISOLONE
  4. OXYCODONE AND ACETAMINOPHEN [Concomitant]
     Active Substance: ACETAMINOPHEN\OXYCODONE HYDROCHLORIDE
  5. VITAMINS [Concomitant]
     Active Substance: VITAMINS
  6. MONTELUKAST SODIUM [Concomitant]
     Active Substance: MONTELUKAST SODIUM
  7. METHOTREXATE [Concomitant]
     Active Substance: METHOTREXATE
  8. METHOCARBAMOL [Concomitant]
     Active Substance: METHOCARBAMOL
  9. MECLIZINE HYDROCHLORIDE [Concomitant]
     Active Substance: MECLIZINE HYDROCHLORIDE
  10. LISINOPRIL [Concomitant]
     Active Substance: LISINOPRIL
  11. FOLIC ACID [Concomitant]
     Active Substance: FOLIC ACID
  12. FAMOTIDINE [Concomitant]
     Active Substance: FAMOTIDINE
  13. EZETIMIBE [Concomitant]
     Active Substance: EZETIMIBE
  14. CLONAZEPAM [Concomitant]
     Active Substance: CLONAZEPAM
  15. AMLODIPINE BESYLATE [Concomitant]
     Active Substance: AMLODIPINE BESYLATE

REACTIONS (1)
  - Drug ineffective [Unknown]
